FAERS Safety Report 4883988-4 (Version None)
Quarter: 2006Q1

REPORT INFORMATION
  Report Type: 
  Country: None (occurrence: None)
  Receive Date: 20060117
  Receipt Date: 20060104
  Transmission Date: 20060701
  Serious: Yes (Hospitalization)
  Sender: FDA-Public Use
  Company Number: 200610062BWH

PATIENT
  Sex: Female

DRUGS (6)
  1. ADALAT CC [Suspect]
     Indication: MYOCARDIAL INFARCTION
     Dosage: SEE IMAGE
     Dates: start: 19900101
  2. LISINOPRIL [Concomitant]
  3. LIPITOR [Concomitant]
  4. NEXIUM [Concomitant]
  5. ASPIRIN [Concomitant]
  6. XANAX [Concomitant]

REACTIONS (5)
  - ANXIETY [None]
  - CHOLECYSTECTOMY [None]
  - DEPRESSION [None]
  - HEART RATE INCREASED [None]
  - HIATUS HERNIA [None]
